FAERS Safety Report 5712167-3 (Version None)
Quarter: 2008Q2

REPORT INFORMATION
  Report Type: 
  Country: None (occurrence: None)
  Receive Date: 20080422
  Receipt Date: 20080408
  Transmission Date: 20081010
  Serious: Yes (Hospitalization)
  Sender: FDA-Public Use
  Company Number: FR-BAYER-200816398GPV

PATIENT
  Age: 47 Year
  Sex: Female

DRUGS (2)
  1. MIRENA [Suspect]
     Indication: DRUG USE FOR UNKNOWN INDICATION
     Dosage: TOTAL DAILY DOSE: 20 ?G
     Route: 015
     Dates: start: 20060530, end: 20080401
  2. MIRENA [Suspect]
     Dosage: TOTAL DAILY DOSE: 20 ?G
     Route: 015
     Dates: start: 20000530, end: 20060518

REACTIONS (1)
  - OVARIAN CANCER [None]
